FAERS Safety Report 15427287 (Version 1)
Quarter: 2018Q3

REPORT INFORMATION
  Report Type: Spontaneous
  Country: TR (occurrence: TR)
  Receive Date: 20180925
  Receipt Date: 20180925
  Transmission Date: 20181010
  Serious: Yes (Disabling, Other)
  Sender: FDA-Public Use
  Company Number: TR-GEHC-2018CSU003755

PATIENT

DRUGS (1)
  1. GADOLINIUM (UNSPECIFIED) [Suspect]
     Active Substance: GADOLINIUM
     Indication: PULMONARY EMBOLISM
     Dosage: UNK UNK, SINGLE
     Route: 042

REACTIONS (1)
  - Nephrogenic systemic fibrosis [Not Recovered/Not Resolved]
